FAERS Safety Report 20722758 (Version 2)
Quarter: 2022Q2

REPORT INFORMATION
  Report Type: Report from Study
  Country: PH (occurrence: PH)
  Receive Date: 20220419
  Receipt Date: 20220618
  Transmission Date: 20220720
  Serious: Yes (Death, Life-Threatening, Other)
  Sender: FDA-Public Use
  Company Number: PH-JNJFOC-20220421610

PATIENT
  Age: 60 Year
  Sex: Male

DRUGS (4)
  1. DARZALEX [Suspect]
     Active Substance: DARATUMUMAB
     Indication: Plasma cell myeloma
     Dosage: ON DAY 1
     Route: 042
     Dates: start: 20220119, end: 20220120
  2. VITAMIN C [Concomitant]
     Active Substance: ASCORBIC ACID
     Indication: Product used for unknown indication
     Route: 048
     Dates: start: 20220106, end: 20220119
  3. INSULIN NOS [Concomitant]
     Active Substance: INSULIN NOS
     Indication: Blood glucose increased
     Route: 065
     Dates: start: 20220129, end: 20220129
  4. INSULIN NOS [Concomitant]
     Active Substance: INSULIN NOS
     Route: 065
     Dates: start: 20220129, end: 20220129

REACTIONS (14)
  - Plasma cell myeloma [Fatal]
  - Hyperglycaemia [Recovered/Resolved]
  - Cough [Unknown]
  - Haematochezia [Unknown]
  - Skin discolouration [Recovered/Resolved]
  - Sputum discoloured [Unknown]
  - Asthma [Unknown]
  - Musculoskeletal stiffness [Unknown]
  - Feeling cold [Recovered/Resolved]
  - Pulse absent [Recovered/Resolved]
  - Ocular icterus [Unknown]
  - Nail discolouration [Unknown]
  - Pyrexia [Recovered/Resolved]
  - Infusion related reaction [Recovered/Resolved]

NARRATIVE: CASE EVENT DATE: 20220119
